FAERS Safety Report 24528201 (Version 1)
Quarter: 2024Q4

REPORT INFORMATION
  Report Type: Spontaneous
  Country: US (occurrence: US)
  Receive Date: 20241021
  Receipt Date: 20241021
  Transmission Date: 20250115
  Serious: Yes (Life-Threatening, Hospitalization, Other)
  Sender: Unknown Manufacturer
  Company Number: US-862174955-ML2024-05547

PATIENT
  Age: 50 Year
  Sex: Male

DRUGS (2)
  1. FAMOTIDINE [Suspect]
     Active Substance: FAMOTIDINE
     Indication: Product used for unknown indication
  2. QUETIAPINE [Suspect]
     Active Substance: QUETIAPINE
     Indication: Autism spectrum disorder

REACTIONS (3)
  - Salmonella bacteraemia [Unknown]
  - Infectious pleural effusion [Unknown]
  - Enteritis infectious [Unknown]
